FAERS Safety Report 11840687 (Version 1)
Quarter: 2015Q4

REPORT INFORMATION
  Report Type: Spontaneous
  Country: US (occurrence: None)
  Receive Date: 20151215
  Receipt Date: 20151215
  Transmission Date: 20160305
  Serious: Yes (Other)
  Sender: FDA-Public Use
  Company Number: None

PATIENT
  Age: 82 Year
  Sex: Male

DRUGS (5)
  1. AMLODIPINE BESYLATE. [Suspect]
     Active Substance: AMLODIPINE BESYLATE
  2. VARSARTAN/HCL [Concomitant]
  3. CLOPIDOGREL [Concomitant]
     Active Substance: CLOPIDOGREL BISULFATE
  4. METEPROPOLOL [Concomitant]
  5. ATORV [Concomitant]

REACTIONS (1)
  - Angina pectoris [None]

NARRATIVE: CASE EVENT DATE: 20150501
